FAERS Safety Report 16392764 (Version 6)
Quarter: 2021Q3

REPORT INFORMATION
  Report Type: Other
  Country: DE (occurrence: DE)
  Receive Date: 20190605
  Receipt Date: 20210708
  Transmission Date: 20211014
  Serious: No
  Sender: FDA-Public Use
  Company Number: DE-ROCHE-2326426

PATIENT
  Age: 47 Year
  Sex: Female
  Weight: 90 kg

DRUGS (20)
  1. ZOPICLON [Concomitant]
     Active Substance: ZOPICLONE
     Route: 048
     Dates: start: 20190919
  2. AERIUS [Concomitant]
     Route: 048
     Dates: start: 20180906, end: 20180908
  3. CANDESARTAN. [Concomitant]
     Active Substance: CANDESARTAN
     Indication: HYPERTENSION
     Route: 048
     Dates: start: 202003
  4. CANDESARTAN. [Concomitant]
     Active Substance: CANDESARTAN
     Route: 048
     Dates: start: 201907
  5. PREDNISOLUT [Concomitant]
     Active Substance: PREDNISOLONE
     Route: 048
     Dates: start: 20190408, end: 20190408
  6. ERGENYL CHRONO [Concomitant]
     Active Substance: VALPROIC ACID
     Indication: EPILEPSY
     Dosage: ONGOING
     Route: 048
     Dates: start: 19860101
  7. OCRELIZUMAB. [Suspect]
     Active Substance: OCRELIZUMAB
     Indication: PRIMARY PROGRESSIVE MULTIPLE SCLEROSIS
     Route: 042
     Dates: start: 20180907, end: 20180920
  8. OCRELIZUMAB. [Suspect]
     Active Substance: OCRELIZUMAB
     Route: 042
     Dates: start: 20190408
  9. AERIUS [Concomitant]
     Route: 048
     Dates: start: 20180919, end: 20180921
  10. AERIUS [Concomitant]
     Route: 048
     Dates: start: 20190407, end: 20190409
  11. RANITIDINE. [Concomitant]
     Active Substance: RANITIDINE
     Route: 048
     Dates: start: 20180919, end: 20180921
  12. CITALOPRAM [Concomitant]
     Active Substance: CITALOPRAM HYDROBROMIDE
     Indication: DEPRESSION
     Route: 048
  13. PREDNISOLUT [Concomitant]
     Active Substance: PREDNISOLONE
     Route: 042
     Dates: start: 20180907, end: 20180920
  14. IBUPROFEN. [Concomitant]
     Active Substance: IBUPROFEN
     Indication: PAIN
     Route: 048
  15. RAMIPRIL. [Concomitant]
     Active Substance: RAMIPRIL
     Indication: HYPERTENSION
     Route: 048
     Dates: start: 201902, end: 201907
  16. RANITIDINE. [Concomitant]
     Active Substance: RANITIDINE
     Route: 048
     Dates: start: 20180906, end: 20190409
  17. PREDNISOLUT [Concomitant]
     Active Substance: PREDNISOLONE
     Route: 042
     Dates: start: 20180907, end: 20180907
  18. MAGNESIOCARD [Concomitant]
     Active Substance: MAGNESIUM ASPARTATE HYDROCHLORIDE
     Indication: MAGNESIUM DEFICIENCY
     Dosage: ONGOING
     Route: 048
  19. DIAZEPAM. [Concomitant]
     Active Substance: DIAZEPAM
     Indication: INSOMNIA
     Dosage: ONGOING
     Route: 048
  20. RANITIDINE. [Concomitant]
     Active Substance: RANITIDINE
     Route: 048
     Dates: start: 20190407, end: 20190409

REACTIONS (8)
  - Hypertension [Not Recovered/Not Resolved]
  - Cough [Unknown]
  - Upper respiratory tract infection [Recovered/Resolved]
  - Infusion related reaction [Recovered/Resolved]
  - Infection susceptibility increased [Not Recovered/Not Resolved]
  - Nasopharyngitis [Recovered/Resolved]
  - Initial insomnia [Unknown]
  - Nasopharyngitis [Recovered/Resolved]

NARRATIVE: CASE EVENT DATE: 20180907
